FAERS Safety Report 5081656-X (Version None)
Quarter: 2006Q3

REPORT INFORMATION
  Report Type: 
  Country: None (occurrence: None)
  Receive Date: 20060811
  Receipt Date: 20060125
  Transmission Date: 20061208
  Serious: Yes (Hospitalization)
  Sender: FDA-Public Use
  Company Number: B0433600A

PATIENT
  Age: 38 Year
  Sex: Male

DRUGS (4)
  1. EPIVIR [Suspect]
     Indication: SYSTEMIC ANTIVIRAL TREATMENT
  2. FLUCONAZOLE [Suspect]
     Indication: DRUG USE FOR UNKNOWN INDICATION
     Dosage: ORAL
     Route: 048
  3. STAVUDINE [Suspect]
     Indication: SYSTEMIC ANTIVIRAL TREATMENT
  4. INDINIVIR SULFATE [Concomitant]
     Indication: SYSTEMIC ANTIVIRAL TREATMENT

REACTIONS (11)
  - ASTHENIA [None]
  - CRYPTOCOCCOSIS [None]
  - CYST [None]
  - DEAFNESS [None]
  - FUNGAL INFECTION [None]
  - HYPOAESTHESIA [None]
  - IMMUNE RECONSTITUTION SYNDROME [None]
  - INTRASPINAL ABSCESS [None]
  - LUNG NEOPLASM [None]
  - LYMPHADENOPATHY [None]
  - MUSCULAR WEAKNESS [None]
